FAERS Safety Report 10799135 (Version 1)
Quarter: 2015Q1

REPORT INFORMATION
  Report Type: Spontaneous
  Country: US (occurrence: US)
  Receive Date: 20150216
  Receipt Date: 20150216
  Transmission Date: 20150721
  Serious: No
  Sender: FDA-Public Use
  Company Number: US-ALLERGAN-1402025US

PATIENT
  Age: 74 Year
  Sex: Female

DRUGS (5)
  1. LAXATIVES NOS [Concomitant]
     Active Substance: UNSPECIFIED INGREDIENT
     Indication: GASTROINTESTINAL DISORDER
     Dosage: Q
  2. LORAZEPAM. [Concomitant]
     Active Substance: LORAZEPAM
     Indication: CARDIAC FLUTTER
     Dosage: 1 MG, QD
     Route: 048
  3. ATENOLOL. [Concomitant]
     Active Substance: ATENOLOL
     Indication: HYPERTENSION
     Dosage: UNK
  4. LUBRICATING EYE DROPS NOS [Concomitant]
     Indication: DRY EYE
  5. RESTASIS [Suspect]
     Active Substance: CYCLOSPORINE
     Indication: DRY EYE
     Dosage: 2 GTT, BID
     Route: 047

REACTIONS (5)
  - Eye irritation [Unknown]
  - Ocular hyperaemia [Unknown]
  - Eyelid oedema [Unknown]
  - Scleral hyperaemia [Unknown]
  - Eye discharge [Unknown]
